FAERS Safety Report 12788325 (Version 2)
Quarter: 2016Q4

REPORT INFORMATION
  Report Type: Spontaneous
  Country: FR (occurrence: FR)
  Receive Date: 20160928
  Receipt Date: 20161103
  Transmission Date: 20170207
  Serious: Yes (Hospitalization)
  Sender: FDA-Public Use
  Company Number: FR-ACCORD-044304

PATIENT
  Age: 72 Year
  Sex: Female

DRUGS (10)
  1. DOCETAXEL ACCORD [Suspect]
     Active Substance: DOCETAXEL
     Indication: PRODUCT USED FOR UNKNOWN INDICATION
     Route: 042
     Dates: start: 20160708, end: 20160803
  2. COOLMETEC [Concomitant]
     Active Substance: HYDROCHLOROTHIAZIDE\OLMESARTAN MEDOXOMIL
     Dosage: 20 MG/12.5 MG
  3. HERCEPTIN [Suspect]
     Active Substance: TRASTUZUMAB
     Indication: PRODUCT USED FOR UNKNOWN INDICATION
     Dosage: 600 MG/5ML SOLUTION INJECTABLE?600 MG IN ONE COURSE TWO ADMINISTRATIONS IN TOTAL
     Route: 058
     Dates: start: 20160708, end: 20160803
  4. PERJETA [Suspect]
     Active Substance: PERTUZUMAB
     Indication: PRODUCT USED FOR UNKNOWN INDICATION
     Dosage: STRENGTH:420 MG?400 MG, IN ONE COURSE (TWO ADMINISTRATIONS IN TOTAL)
     Route: 042
     Dates: start: 20160708, end: 20160803
  5. JANUVIA [Concomitant]
     Active Substance: SITAGLIPTIN PHOSPHATE
  6. LERCAN [Concomitant]
     Active Substance: LERCANIDIPINE
  7. HYPERIUM [Concomitant]
     Active Substance: RILMENIDINE PHOSPHATE
  8. AUGMENTIN [Suspect]
     Active Substance: AMOXICILLIN\CLAVULANATE POTASSIUM
     Indication: PRODUCT USED FOR UNKNOWN INDICATION
     Route: 048
     Dates: start: 20160708, end: 20160717
  9. SOTALOL. [Concomitant]
     Active Substance: SOTALOL
  10. DIAMICRON [Concomitant]
     Active Substance: GLICLAZIDE

REACTIONS (6)
  - Urinary tract infection [Unknown]
  - Decreased appetite [Unknown]
  - Diarrhoea [Recovered/Resolved]
  - Asthenia [Unknown]
  - Hypokalaemia [Unknown]
  - Acute kidney injury [Recovering/Resolving]

NARRATIVE: CASE EVENT DATE: 201607
